FAERS Safety Report 18284225 (Version 1)
Quarter: 2020Q3

REPORT INFORMATION
  Report Type: Spontaneous
  Country: US (occurrence: PR)
  Receive Date: 20200918
  Receipt Date: 20200918
  Transmission Date: 20201103
  Serious: Yes (Other)
  Sender: FDA-Public Use
  Company Number: US-ENDO PHARMACEUTICALS INC-2020-006211

PATIENT

DRUGS (2)
  1. RANITIDINE HYDROCHLORIDE. [Suspect]
     Active Substance: RANITIDINE HYDROCHLORIDE
     Indication: PRODUCT USED FOR UNKNOWN INDICATION
     Dosage: UNK UNKNOWN, UNKNOWN
     Route: 065
     Dates: start: 2011, end: 2019
  2. ZANTAC [Suspect]
     Active Substance: RANITIDINE HYDROCHLORIDE
     Indication: PRODUCT USED FOR UNKNOWN INDICATION
     Dosage: UNK UNKNOWN, UNKNOWN
     Route: 065
     Dates: start: 2011, end: 2019

REACTIONS (1)
  - Gastric cancer [Unknown]

NARRATIVE: CASE EVENT DATE: 20170213
